FAERS Safety Report 22252315 (Version 1)
Quarter: 2023Q2

REPORT INFORMATION
  Report Type: Spontaneous
  Country: US (occurrence: US)
  Receive Date: 20230426
  Receipt Date: 20230426
  Transmission Date: 20230722
  Serious: Yes (Hospitalization, Other)
  Sender: FDA-Public Use
  Company Number: US-AMGEN-USASP2023068209

PATIENT
  Age: 73 Year
  Sex: Female

DRUGS (10)
  1. RITUXIMAB [Suspect]
     Active Substance: RITUXIMAB
     Indication: Post transplant lymphoproliferative disorder
     Route: 065
  2. RITUXIMAB [Suspect]
     Active Substance: RITUXIMAB
     Indication: Diffuse large B-cell lymphoma
  3. CYCLOPHOSPHAMIDE [Concomitant]
     Active Substance: CYCLOPHOSPHAMIDE
     Indication: Post transplant lymphoproliferative disorder
  4. CYCLOPHOSPHAMIDE [Concomitant]
     Active Substance: CYCLOPHOSPHAMIDE
     Indication: Diffuse large B-cell lymphoma
  5. EPIRUBICIN [Concomitant]
     Active Substance: EPIRUBICIN
     Indication: Post transplant lymphoproliferative disorder
  6. EPIRUBICIN [Concomitant]
     Active Substance: EPIRUBICIN
     Indication: Diffuse large B-cell lymphoma
  7. ONCOVIN [Concomitant]
     Active Substance: VINCRISTINE SULFATE
     Indication: Post transplant lymphoproliferative disorder
  8. ONCOVIN [Concomitant]
     Active Substance: VINCRISTINE SULFATE
     Indication: Diffuse large B-cell lymphoma
  9. PREDNISONE [Concomitant]
     Active Substance: PREDNISONE
     Indication: Post transplant lymphoproliferative disorder
  10. PREDNISONE [Concomitant]
     Active Substance: PREDNISONE
     Indication: Diffuse large B-cell lymphoma

REACTIONS (4)
  - Diffuse large B-cell lymphoma refractory [Recovered/Resolved]
  - Immune effector cell-associated neurotoxicity syndrome [Recovered/Resolved]
  - Cytokine release syndrome [Recovered/Resolved]
  - White blood cell count decreased [Recovered/Resolved]
